FAERS Safety Report 8780214 (Version 1)
Quarter: 2012Q4

REPORT INFORMATION
  Report Type: Spontaneous
  Country: US (occurrence: None)
  Receive Date: 20120904
  Receipt Date: 20120904
  Transmission Date: 20130627
  Serious: Yes (Hospitalization)
  Sender: FDA-Public Use
  Company Number: None

PATIENT
  Age: 82 Year
  Sex: Male
  Weight: 83.5 kg

DRUGS (1)
  1. NAFCILLIN [Suspect]
     Dates: start: 20120404, end: 20120503

REACTIONS (6)
  - Pyrexia [None]
  - Chest pain [None]
  - Dyspnoea [None]
  - Nephritis [None]
  - Blood urea increased [None]
  - Blood creatinine increased [None]
